FAERS Safety Report 9256558 (Version 1)
Quarter: 2013Q2

REPORT INFORMATION
  Report Type: Spontaneous
  Country: PL (occurrence: PL)
  Receive Date: 20130426
  Receipt Date: 20130426
  Transmission Date: 20140414
  Serious: Yes (Other)
  Sender: FDA-Public Use
  Company Number: PL-ROCHE-1218439

PATIENT
  Age: 72 Year
  Sex: Female

DRUGS (2)
  1. BONVIVA [Suspect]
     Indication: PRODUCT USED FOR UNKNOWN INDICATION
     Route: 048
     Dates: end: 201010
  2. BONVIVA [Concomitant]
     Route: 042
     Dates: start: 201303

REACTIONS (3)
  - Spinal fracture [Not Recovered/Not Resolved]
  - Rib fracture [Unknown]
  - Drug ineffective [Unknown]
